FAERS Safety Report 6560977-5 (Version None)
Quarter: 2010Q1

REPORT INFORMATION
  Report Type: 
  Country: None (occurrence: None)
  Receive Date: 20100130
  Receipt Date: 20090930
  Transmission Date: 20100710
  Serious: Yes (Hospitalization, Other)
  Sender: FDA-Public Use
  Company Number: US-ABBOTT-09P-163-0599979-00

PATIENT
  Sex: Male
  Weight: 102.15 kg

DRUGS (2)
  1. HUMIRA [Suspect]
     Indication: PSORIATIC ARTHROPATHY
     Route: 058
     Dates: start: 20070711, end: 20080401
  2. HUMIRA [Suspect]
     Route: 058
     Dates: start: 20090623, end: 20090730

REACTIONS (5)
  - ARTHRALGIA [None]
  - ARTHRITIS BACTERIAL [None]
  - HEADACHE [None]
  - STAPHYLOCOCCAL INFECTION [None]
  - VISUAL IMPAIRMENT [None]
